FAERS Safety Report 10575924 (Version 1)
Quarter: 2014Q4

REPORT INFORMATION
  Report Type: Spontaneous
  Country: US (occurrence: None)
  Receive Date: 20141110
  Receipt Date: 20141110
  Transmission Date: 20150529
  Serious: Yes (Hospitalization)
  Sender: FDA-Public Use
  Company Number: None

PATIENT
  Age: 61 Year
  Sex: Male
  Weight: 75.7 kg

DRUGS (2)
  1. ERBITUX [Suspect]
     Active Substance: CETUXIMAB
  2. TAXOTERE [Suspect]
     Active Substance: DOCETAXEL

REACTIONS (5)
  - Radiation skin injury [None]
  - Erythema [None]
  - Hypophagia [None]
  - Asthenia [None]
  - Tenderness [None]

NARRATIVE: CASE EVENT DATE: 20141105
